FAERS Safety Report 12952753 (Version 1)
Quarter: 2016Q4

REPORT INFORMATION
  Report Type: Spontaneous
  Country: US (occurrence: US)
  Receive Date: 20161117
  Receipt Date: 20161117
  Transmission Date: 20170207
  Serious: No
  Sender: FDA-Public Use
  Company Number: US-ASTRAZENECA-2016SF18525

PATIENT
  Age: 26941 Day
  Sex: Female
  Weight: 81.6 kg

DRUGS (7)
  1. MOVANTIK [Suspect]
     Active Substance: NALOXEGOL OXALATE
     Indication: ILL-DEFINED DISORDER
     Route: 048
     Dates: start: 20161107
  2. MOVANTIK [Suspect]
     Active Substance: NALOXEGOL OXALATE
     Indication: DRUG ABUSE
     Route: 048
     Dates: start: 20161107
  3. MOVANTIK [Suspect]
     Active Substance: NALOXEGOL OXALATE
     Indication: GASTROINTESTINAL TRACT IRRITATION
     Route: 048
     Dates: start: 20161107
  4. MOVANTIK [Suspect]
     Active Substance: NALOXEGOL OXALATE
     Indication: ABDOMINAL DISTENSION
     Route: 048
     Dates: start: 20161107
  5. AMBIEN [Concomitant]
     Active Substance: ZOLPIDEM TARTRATE
     Indication: SLEEP DISORDER
     Dosage: 10.0MG AS REQUIRED
     Route: 048
     Dates: start: 2015
  6. MOVANTIK [Suspect]
     Active Substance: NALOXEGOL OXALATE
     Indication: GASTROINTESTINAL PAIN
     Route: 048
     Dates: start: 20161107
  7. NORCO [Concomitant]
     Active Substance: ACETAMINOPHEN\HYDROCODONE BITARTRATE
     Indication: PAIN
     Dosage: 7.5/32 MG AS REQUIRED
     Route: 048

REACTIONS (4)
  - Intentional product misuse [Unknown]
  - Product use issue [Unknown]
  - Drug effect increased [Unknown]
  - Muscle spasms [Unknown]

NARRATIVE: CASE EVENT DATE: 20161107
